FAERS Safety Report 15955049 (Version 5)
Quarter: 2020Q2

REPORT INFORMATION
  Report Type: Spontaneous
  Country: US (occurrence: US)
  Receive Date: 20190213
  Receipt Date: 20200518
  Transmission Date: 20200713
  Serious: No
  Sender: FDA-Public Use
  Company Number: US-PFIZER INC-2017479820

PATIENT
  Age: 72 Year
  Sex: Female
  Weight: 126.5 kg

DRUGS (20)
  1. LYRICA [Suspect]
     Active Substance: PREGABALIN
     Dosage: 150 MG, TWICE A DAY (1 PO AT 12 PM AND 1 PO AT 08:30 PM X 7 DAYS)
     Route: 048
  2. FISH OIL [Concomitant]
     Active Substance: FISH OIL
     Dosage: 1200 MG, 1X/DAY, (QD)
     Route: 048
     Dates: start: 2014
  3. PRILOSEC [Concomitant]
     Active Substance: OMEPRAZOLE MAGNESIUM
     Dosage: UNK
     Dates: start: 2014
  4. DICLOFENAC SODIUM. [Concomitant]
     Active Substance: DICLOFENAC SODIUM
     Dosage: 50 MG, 1X/DAY, (QD)
     Route: 048
     Dates: start: 2014
  5. OXYCODONE [Concomitant]
     Active Substance: OXYCODONE
     Dosage: 40 MG, 1X/DAY, (2 TAB, QD)
     Route: 048
     Dates: start: 2014
  6. ASPIRIN. [Concomitant]
     Active Substance: ASPIRIN
     Dosage: 81 MG, 1X/DAY, (QD)
     Route: 048
     Dates: start: 2014
  7. LYRICA [Suspect]
     Active Substance: PREGABALIN
     Dosage: 150 MG, THREE TIMES A DAY (1 PO 7-8 AM, 1 PO AT 12 PM AND 1 AT 08:30 PM)
     Route: 048
  8. LYRICA [Suspect]
     Active Substance: PREGABALIN
     Dosage: 150 MG, THREE TIMES A DAY
     Route: 048
     Dates: start: 2018
  9. NEUPRO [Concomitant]
     Active Substance: ROTIGOTINE
     Dosage: 3 MG, 1X/DAY, (3MG/24 HR PATCH )
     Route: 048
     Dates: start: 2008
  10. LYRICA [Suspect]
     Active Substance: PREGABALIN
     Dosage: 150 MG, 3X/DAY (TAKE 1 CAPSULE BY MOUTH AT 7-8AM, 1 CAPSULE AT NOON AND 1 CAPSULE AT 8:30PM)
     Route: 048
  11. BENAZEPRIL [Concomitant]
     Active Substance: BENAZEPRIL HYDROCHLORIDE
     Dosage: 10 MG, 1X/DAY, (QD)
     Route: 048
     Dates: start: 2014
  12. FLUTICASONE. [Concomitant]
     Active Substance: FLUTICASONE
     Dosage: UNK, (1-2 SPRAY EACH NOSTRIL X1 DAY)
     Route: 045
     Dates: start: 2014
  13. VITAMIN D3 [Concomitant]
     Active Substance: CHOLECALCIFEROL
     Dosage: UNK
     Dates: start: 2014
  14. LYRICA [Suspect]
     Active Substance: PREGABALIN
     Indication: RESTLESS LEGS SYNDROME
     Dosage: 150 MG, ONCE A DAY (AT 08:30 PM X 7 DAYS)
     Route: 048
  15. LYRICA [Suspect]
     Active Substance: PREGABALIN
     Dosage: 150 MG, TWICE A DAY (1 IN THE MORNING, 1 AT NIGHT-SHE CUT OUT THE NOON DOSE)
     Route: 048
  16. CLONAZEPAM. [Concomitant]
     Active Substance: CLONAZEPAM
     Dosage: 1 MG, 1X/DAY, (QHS)
     Route: 048
     Dates: start: 2014
  17. OSTEO BI-FLEX [Concomitant]
     Active Substance: CHONDROITIN SULFATE A\GLUCOSAMINE
     Dosage: UNK
     Dates: start: 2014
  18. POTASSIUM [Concomitant]
     Active Substance: POTASSIUM
     Dosage: 99 MG, 1X/DAY, (QD)
     Route: 048
     Dates: start: 2014
  19. CALCIUM 600+D3 [Concomitant]
     Active Substance: CALCIUM CARBONATE\VITAMIN D
     Dosage: 1 DF, 1X/DAY, (QD)
     Route: 048
     Dates: start: 2014
  20. GABAPENTIN. [Concomitant]
     Active Substance: GABAPENTIN
     Dosage: UNK, (CAPSULE 1-2)
     Route: 048
     Dates: start: 2008

REACTIONS (4)
  - Drug ineffective for unapproved indication [Not Recovered/Not Resolved]
  - Off label use [Unknown]
  - Product use in unapproved indication [Unknown]
  - Intentional product use issue [Unknown]

NARRATIVE: CASE EVENT DATE: 2018
